FAERS Safety Report 18780260 (Version 4)
Quarter: 2021Q3

REPORT INFORMATION
  Report Type: Spontaneous
  Country: FR (occurrence: FR)
  Receive Date: 20210125
  Receipt Date: 20210930
  Transmission Date: 20211014
  Serious: Yes (Death, Hospitalization, Other)
  Sender: FDA-Public Use
  Company Number: FR-SA-2021SA020491

PATIENT
  Age: 55 Year
  Sex: Female
  Weight: 85 kg

DRUGS (19)
  1. RIFATER [Suspect]
     Active Substance: ISONIAZID\PYRAZINAMIDE\RIFAMPIN
     Indication: LYMPH NODE TUBERCULOSIS
     Dosage: 8 DF
     Route: 048
     Dates: start: 20201206, end: 20201215
  2. FRESUBIN [CAFFEINE;CARBOHYDRATES NOS;FATS NOS;FIBRE, DIETARY;MINERALS [Concomitant]
  3. KARDEGIC [Concomitant]
     Active Substance: ASPIRIN DL-LYSINE
  4. LANSOPRAZOLE. [Concomitant]
     Active Substance: LANSOPRAZOLE
  5. ARANESP [Concomitant]
     Active Substance: DARBEPOETIN ALFA
     Dosage: 40 UG, QW
  6. IRBESARTAN. [Concomitant]
     Active Substance: IRBESARTAN
  7. VOGALENE [Concomitant]
     Active Substance: METOPIMAZINE
  8. NORADRENALINE [NOREPINEPHRINE] [Concomitant]
     Active Substance: NOREPINEPHRINE
  9. PRINCI B [PYRIDOXINE HYDROCHLORIDE;THIAMINE MONONITRATE] [Concomitant]
     Active Substance: PYRIDOXINE\THIAMINE
  10. ETHAMBUTOL [Suspect]
     Active Substance: ETHAMBUTOL HYDROCHLORIDE
     Indication: LYMPH NODE TUBERCULOSIS
     Dosage: 2 TABLETS / DAY OR 1000 MG / DAY
     Route: 048
     Dates: start: 20201204, end: 20201215
  11. GALVUS [Concomitant]
     Active Substance: VILDAGLIPTIN
  12. ADVAGRAF [Concomitant]
     Active Substance: TACROLIMUS
  13. DOLIPRANE [Concomitant]
     Active Substance: ACETAMINOPHEN
  14. FOLIC ACID. [Concomitant]
     Active Substance: FOLIC ACID
  15. CORTANCYL [Concomitant]
     Active Substance: PREDNISONE
  16. SERTRALINE [Concomitant]
     Active Substance: SERTRALINE HYDROCHLORIDE
  17. MYFORTIC [Concomitant]
     Active Substance: MYCOPHENOLATE SODIUM
  18. ATORVASTATIN [Concomitant]
     Active Substance: ATORVASTATIN
  19. NACL [Concomitant]
     Active Substance: SODIUM CHLORIDE

REACTIONS (3)
  - Cholestasis [Fatal]
  - Hepatic cytolysis [Fatal]
  - Product prescribing error [Unknown]

NARRATIVE: CASE EVENT DATE: 20201204
